FAERS Safety Report 14319519 (Version 2)
Quarter: 2018Q2

REPORT INFORMATION
  Report Type: Spontaneous
  Country: SE (occurrence: SE)
  Receive Date: 20171222
  Receipt Date: 20180504
  Transmission Date: 20180711
  Serious: Yes (Death)
  Sender: FDA-Public Use
  Company Number: SE-MYLANLABS-2017M1080700

PATIENT
  Age: 19 Year
  Sex: Male

DRUGS (6)
  1. CODEINE [Suspect]
     Active Substance: CODEINE
     Indication: PRODUCT USED FOR UNKNOWN INDICATION
  2. GAMMA-AMINO-BETA-HYDROXYBUTYRIC ACID [Interacting]
     Active Substance: .GAMMA.-AMINO-.BETA.-HYDROXYBUTYRIC ACID
     Indication: PRODUCT USED FOR UNKNOWN INDICATION
  3. HEROIN [Interacting]
     Active Substance: DIAMORPHINE
     Indication: TOXICITY TO VARIOUS AGENTS
  4. MORPHINE [Suspect]
     Active Substance: MORPHINE
     Indication: PRODUCT USED FOR UNKNOWN INDICATION
  5. HEROIN [Interacting]
     Active Substance: DIAMORPHINE
     Indication: TOXICITY TO VARIOUS AGENTS
  6. HEROIN [Interacting]
     Active Substance: DIAMORPHINE
     Indication: PRODUCT USED FOR UNKNOWN INDICATION

REACTIONS (3)
  - Toxicity to various agents [Fatal]
  - Overdose [Fatal]
  - Drug interaction [Fatal]
